FAERS Safety Report 9303078 (Version 4)
Quarter: 2013Q3

REPORT INFORMATION
  Report Type: Spontaneous
  Country: ES (occurrence: ES)
  Receive Date: 20130522
  Receipt Date: 20130722
  Transmission Date: 20140515
  Serious: Yes (Other)
  Sender: FDA-Public Use
  Company Number: ES-AMGEN-ESPSP2013035931

PATIENT
  Age: 62 Year
  Sex: Female
  Weight: 57 kg

DRUGS (4)
  1. PROLIA [Suspect]
     Indication: OSTEOPOROSIS
     Dosage: 60 MG, Q6MO
     Route: 058
     Dates: start: 201203
  2. HIDROFEROL [Concomitant]
     Indication: OSTEOPOROSIS
     Dosage: 0.266 MG, Q2WK
     Route: 048
     Dates: start: 20111003
  3. SIMVASTATIN [Concomitant]
     Indication: DYSLIPIDAEMIA
     Dosage: 200 MG, QD
     Route: 048
  4. IDEOS [Concomitant]
     Indication: OSTEOPOROSIS
     Dosage: 500 MG, QD
     Route: 048
     Dates: start: 20111004

REACTIONS (1)
  - Osteonecrosis [Not Recovered/Not Resolved]
